FAERS Safety Report 15974711 (Version 2)
Quarter: 2019Q2

REPORT INFORMATION
  Report Type: Spontaneous
  Country: FR (occurrence: FR)
  Receive Date: 20190218
  Receipt Date: 20190403
  Transmission Date: 20190711
  Serious: Yes (Other)
  Sender: FDA-Public Use
  Company Number: FR-TEVA-2019-FR-1009876

PATIENT
  Age: 54 Year
  Sex: Female
  Weight: 52 kg

DRUGS (5)
  1. AMOXICILLIN BASE [Suspect]
     Active Substance: AMOXICILLIN
     Indication: URINARY TRACT INFECTION
     Dosage: 3 GRAM DAILY;
     Route: 048
     Dates: start: 20181119, end: 20181126
  2. LOVENOX [Concomitant]
     Active Substance: ENOXAPARIN SODIUM
  3. PREDNISONE. [Suspect]
     Active Substance: PREDNISONE
     Dosage: 50 MILLIGRAM DAILY;
     Route: 048
     Dates: start: 20181122, end: 20190110
  4. PREVNAR 13 [Suspect]
     Active Substance: PNEUMOCOCCAL 13-VALENT CONJUGATE VACCINE
     Indication: INFECTION PROPHYLAXIS
     Route: 030
     Dates: start: 201811
  5. TETRAVAC ACELLULAIRE [Suspect]
     Active Substance: DIPHTHERIA AND TETANUS TOXOIDS AND ACELLULAR PERTUSSIS ADSORBED AND INACTIVATED POLIOVIRUS VACCINE
     Indication: INFECTION PROPHYLAXIS
     Dosage: TETRAVAC ACELLULAR
     Route: 030
     Dates: start: 201811

REACTIONS (1)
  - Hepatitis [Recovered/Resolved]

NARRATIVE: CASE EVENT DATE: 20181123
